FAERS Safety Report 8519985-7 (Version None)
Quarter: 2012Q2

REPORT INFORMATION
  Report Type: 
  Country: None (occurrence: None)
  Receive Date: 20120406
  Receipt Date: 20100824
  Transmission Date: 20120825
  Serious: Yes (Life-Threatening, Hospitalization)
  Sender: FDA-Public Use
  Company Number: PHHY2010US56628

PATIENT
  Age: 49 Year
  Sex: Male

DRUGS (4)
  1. TASIGNA [Suspect]
     Indication: CHRONIC MYELOID LEUKAEMIA
     Dosage: 400 MG, BID, ORAL
     Route: 048
  2. . [Concomitant]
  3. . [Concomitant]
  4. . [Concomitant]

REACTIONS (3)
  - BONE MARROW FAILURE [None]
  - PANCYTOPENIA [None]
  - APLASTIC ANAEMIA [None]
